FAERS Safety Report 23833936 (Version 1)
Quarter: 2024Q2

REPORT INFORMATION
  Report Type: Report from Study
  Country: BR (occurrence: BR)
  Receive Date: 20240509
  Receipt Date: 20240509
  Transmission Date: 20240716
  Serious: Yes (Disabling)
  Sender: FDA-Public Use
  Company Number: BR-CELLTRION INC.-2023BR005375

PATIENT

DRUGS (8)
  1. INFLIXIMAB [Suspect]
     Active Substance: INFLIXIMAB
     Indication: Crohn^s disease
     Dosage: 4 AMPOULES EVERY 30 DAYS
     Route: 042
     Dates: start: 2022
  2. METHOTREXATE [Concomitant]
     Active Substance: METHOTREXATE
     Indication: Crohn^s disease
     Dosage: 1 APPLICATION PER WEEK
     Dates: start: 2016
  3. ESCITALOPRAM [Concomitant]
     Active Substance: ESCITALOPRAM OXALATE
     Indication: Anxiety
     Dosage: 1 PILL A DAY
     Route: 048
     Dates: start: 2022
  4. FOLIC ACID [Concomitant]
     Active Substance: FOLIC ACID
     Indication: Crohn^s disease
     Dosage: 1 PILL PER WEEK
     Route: 048
     Dates: start: 2016
  5. CALCIUM\CHOLECALCIFEROL [Concomitant]
     Active Substance: CALCIUM\CHOLECALCIFEROL
     Indication: Pain in extremity
     Dosage: 2 PILLS A DAY
     Route: 048
     Dates: start: 2016
  6. MESALAMINE [Concomitant]
     Active Substance: MESALAMINE
     Indication: Crohn^s disease
     Dosage: 3 PILLS EVERY 12 HOURS
     Route: 048
     Dates: start: 2016
  7. OLANZAPINE [Concomitant]
     Active Substance: OLANZAPINE
     Indication: Cerebrovascular accident
     Dosage: 1 PILL A DAY
     Route: 048
     Dates: start: 2022
  8. DONEPEZIL [Concomitant]
     Active Substance: DONEPEZIL
     Indication: Cerebrovascular accident
     Dosage: 1 PILL A DAY
     Route: 048
     Dates: start: 2022

REACTIONS (7)
  - Bedridden [Recovering/Resolving]
  - Depressed mood [Recovering/Resolving]
  - Pain [Recovering/Resolving]
  - Pyrexia [Recovered/Resolved]
  - Diarrhoea [Recovered/Resolved]
  - Intentional dose omission [Unknown]
  - Intentional product use issue [Unknown]

NARRATIVE: CASE EVENT DATE: 20230301
